FAERS Safety Report 16077319 (Version 1)
Quarter: 2019Q1

REPORT INFORMATION
  Report Type: Spontaneous
  Country: US (occurrence: US)
  Receive Date: 20190315
  Receipt Date: 20190315
  Transmission Date: 20190418
  Serious: No
  Sender: FDA-Public Use
  Company Number: US-PFIZER INC-2019113849

PATIENT
  Age: 41 Year

DRUGS (4)
  1. ONDANSETRON [Suspect]
     Active Substance: ONDANSETRON
     Dosage: UNK
  2. SIROLIMUS. [Suspect]
     Active Substance: SIROLIMUS
     Dosage: 2.5 MG, 1X/DAY
     Route: 048
  3. MYCOPHENOLATE [Suspect]
     Active Substance: MYCOPHENOLIC ACID
     Dosage: UNK
  4. LISINOPRIL. [Suspect]
     Active Substance: LISINOPRIL
     Dosage: UNK

REACTIONS (1)
  - Drug hypersensitivity [Unknown]
